FAERS Safety Report 11538331 (Version 1)
Quarter: 2015Q3

REPORT INFORMATION
  Report Type: Spontaneous
  Country: US (occurrence: US)
  Receive Date: 20150922
  Receipt Date: 20150922
  Transmission Date: 20151125
  Serious: No
  Sender: FDA-Public Use
  Company Number: US-009507513-1509USA008527

PATIENT
  Sex: Female

DRUGS (1)
  1. NEXPLANON [Suspect]
     Active Substance: ETONOGESTREL
     Indication: CONTRACEPTION
     Dosage: ONE INSERTION/ONCE EVERY THREE YEARS
     Route: 059
     Dates: start: 201312

REACTIONS (4)
  - Device dislocation [Recovered/Resolved]
  - Implant site pain [Recovered/Resolved]
  - Amenorrhoea [Unknown]
  - Menstruation irregular [Unknown]
